FAERS Safety Report 16699209 (Version 1)
Quarter: 2019Q3

REPORT INFORMATION
  Report Type: Spontaneous
  Country: TW (occurrence: TW)
  Receive Date: 20190813
  Receipt Date: 20190813
  Transmission Date: 20191004
  Serious: Yes (Other)
  Sender: FDA-Public Use
  Company Number: PHHY2013TW176485

PATIENT
  Age: 73 Year
  Sex: Male

DRUGS (5)
  1. ALLOPURINOL. [Suspect]
     Active Substance: ALLOPURINOL
     Indication: PRODUCT USED FOR UNKNOWN INDICATION
     Dosage: 100 MG, QD
     Route: 065
  2. HIDROXYUREA [Concomitant]
     Indication: PRODUCT USED FOR UNKNOWN INDICATION
     Dosage: 250 MG, UNK
     Route: 065
     Dates: start: 20070305, end: 20120723
  3. THIAMINE. [Concomitant]
     Active Substance: THIAMINE
     Indication: PRODUCT USED FOR UNKNOWN INDICATION
     Dosage: UNK UNK, BID
     Route: 065
  4. CELECOXIB. [Suspect]
     Active Substance: CELECOXIB
     Indication: PRODUCT USED FOR UNKNOWN INDICATION
     Dosage: 200 MG, QD
     Route: 048
  5. ANAGRELIDE. [Concomitant]
     Active Substance: ANAGRELIDE HYDROCHLORIDE
     Indication: PRODUCT USED FOR UNKNOWN INDICATION
     Dosage: 0.5 MG, UNK
     Route: 065
     Dates: start: 20081020, end: 20081224

REACTIONS (22)
  - Pulmonary tuberculosis [Unknown]
  - Essential thrombocythaemia [Unknown]
  - Tinnitus [Unknown]
  - Decreased appetite [Unknown]
  - Diarrhoea [Unknown]
  - Myocardial ischaemia [Unknown]
  - Osteoarthritis [Unknown]
  - Emphysema [Unknown]
  - Aortic arteriosclerosis [Unknown]
  - Bronchitis chronic [Unknown]
  - Inguinal hernia [Unknown]
  - Benign prostatic hyperplasia [Unknown]
  - Myeloproliferative neoplasm [Unknown]
  - Thrombocytosis [Unknown]
  - Anaemia [Unknown]
  - Arthralgia [Unknown]
  - Calcification of muscle [Unknown]
  - Bone density abnormal [Unknown]
  - Cerebrovascular accident [Unknown]
  - Splenomegaly [Unknown]
  - Weight decreased [Unknown]
  - Bone marrow reticulin fibrosis [Unknown]

NARRATIVE: CASE EVENT DATE: 20100529
